FAERS Safety Report 9618147 (Version 2)
Quarter: 2014Q1

REPORT INFORMATION
  Report Type: Spontaneous
  Country: US (occurrence: US)
  Receive Date: 20131014
  Receipt Date: 20140220
  Transmission Date: 20141002
  Serious: Yes (Hospitalization, Other)
  Sender: FDA-Public Use
  Company Number: US-AMGEN-USASP2013071451

PATIENT
  Age: 64 Year
  Sex: Female

DRUGS (2)
  1. ENBREL [Suspect]
     Indication: RHEUMATOID ARTHRITIS
     Dosage: 50 MG, QWK
     Route: 065
     Dates: start: 20120130, end: 201304
  2. PREDNISONE [Concomitant]
     Dosage: 5 MG, UNK
     Route: 048

REACTIONS (33)
  - Organising pneumonia [Recovered/Resolved]
  - Disorientation [Recovered/Resolved]
  - Memory impairment [Not Recovered/Not Resolved]
  - Hypoxic-ischaemic encephalopathy [Not Recovered/Not Resolved]
  - Oxygen saturation abnormal [Not Recovered/Not Resolved]
  - Cyanosis [Not Recovered/Not Resolved]
  - Haemorrhage [Unknown]
  - Aphagia [Recovered/Resolved]
  - Pharyngitis [Recovered/Resolved]
  - Respiratory tract infection fungal [Recovered/Resolved]
  - Fatigue [Not Recovered/Not Resolved]
  - Dyspnoea [Not Recovered/Not Resolved]
  - Wheelchair user [Recovered/Resolved]
  - Oropharyngeal pain [Recovered/Resolved]
  - Fall [Recovered/Resolved]
  - Muscular weakness [Recovered/Resolved]
  - Dysphemia [Not Recovered/Not Resolved]
  - Disturbance in attention [Not Recovered/Not Resolved]
  - Abdominal distension [Not Recovered/Not Resolved]
  - Chest discomfort [Not Recovered/Not Resolved]
  - Iron deficiency anaemia [Unknown]
  - Oesophageal pain [Recovered/Resolved]
  - Dysphagia [Recovered/Resolved]
  - Weight decreased [Recovered/Resolved]
  - Oxygen saturation decreased [Not Recovered/Not Resolved]
  - Skin discolouration [Not Recovered/Not Resolved]
  - Hepatic enzyme increased [Recovered/Resolved]
  - Dissociation [Not Recovered/Not Resolved]
  - Arthritis [Not Recovered/Not Resolved]
  - Arthralgia [Not Recovered/Not Resolved]
  - Oesophageal candidiasis [Recovered/Resolved]
  - Oropharyngeal candidiasis [Recovered/Resolved]
  - Anaemia [Not Recovered/Not Resolved]
